FAERS Safety Report 25282058 (Version 1)
Quarter: 2025Q2

REPORT INFORMATION
  Report Type: Other
  Country: GB (occurrence: GB)
  Receive Date: 20250508
  Receipt Date: 20250508
  Transmission Date: 20250716
  Serious: Yes (Life-Threatening, Hospitalization, Other)
  Sender: GLENMARK
  Company Number: None

PATIENT
  Age: 81 Year
  Sex: Male

DRUGS (1)
  1. DAPAGLIFLOZIN [Suspect]
     Active Substance: DAPAGLIFLOZIN
     Indication: Product used for unknown indication
     Dosage: 10 MILLIGRAM, OD
     Route: 065

REACTIONS (5)
  - Prostate infection [Not Recovered/Not Resolved]
  - Emphysematous cystitis [Unknown]
  - Pneumonia [Unknown]
  - Prostatitis [Not Recovered/Not Resolved]
  - Influenza [Unknown]
